FAERS Safety Report 15738421 (Version 3)
Quarter: 2019Q1

REPORT INFORMATION
  Report Type: Spontaneous
  Country: FR (occurrence: FR)
  Receive Date: 20181219
  Receipt Date: 20190304
  Transmission Date: 20190417
  Serious: Yes (Death, Other)
  Sender: FDA-Public Use
  Company Number: FR-BRISTOL-MYERS SQUIBB COMPANY-BMS-2018-117592

PATIENT
  Age: 84 Year
  Sex: Female
  Weight: 74 kg

DRUGS (8)
  1. FOLIC ACID. [Concomitant]
     Active Substance: FOLIC ACID
     Indication: HYPOVITAMINOSIS
     Dosage: 10 MG, UNK
     Route: 048
     Dates: end: 20181128
  2. BISOCE [Concomitant]
     Active Substance: BISOPROLOL
     Indication: ATRIAL FIBRILLATION
     Dosage: 1.25 MG, UNK
     Route: 048
     Dates: end: 20181128
  3. OFLOXACINE [Concomitant]
     Active Substance: OFLOXACIN
     Indication: URINARY TRACT INFECTION
     Dosage: 400 MG, UNK
     Route: 048
     Dates: start: 20181107, end: 20181114
  4. ELIQUIS [Suspect]
     Active Substance: APIXABAN
     Indication: CEREBROVASCULAR ACCIDENT PROPHYLAXIS
     Dosage: 5 MG, BID
     Route: 048
     Dates: start: 20181101, end: 20181113
  5. SERESTA [Concomitant]
     Active Substance: OXAZEPAM
     Indication: ANXIETY
     Dosage: 30 MG, UNK
     Route: 048
     Dates: end: 20181128
  6. TIAPRIDAL [Concomitant]
     Active Substance: TIAPRIDE HYDROCHLORIDE
     Indication: ABNORMAL BEHAVIOUR
     Dosage: 30 MG, UNK
     Route: 048
     Dates: end: 20181128
  7. CORDARONE [Concomitant]
     Active Substance: AMIODARONE HYDROCHLORIDE
     Indication: ATRIAL FIBRILLATION
     Dosage: 600 MG, UNK
     Route: 048
     Dates: end: 20181128
  8. FUROSEMIDE. [Concomitant]
     Active Substance: FUROSEMIDE
     Indication: CARDIAC FAILURE
     Dosage: 60 MG, UNK
     Route: 048
     Dates: end: 20181128

REACTIONS (4)
  - Disseminated intravascular coagulation [Fatal]
  - Neoplasm malignant [Fatal]
  - Overdose [Not Recovered/Not Resolved]
  - Encephalitis [Unknown]

NARRATIVE: CASE EVENT DATE: 20181113
